FAERS Safety Report 11712893 (Version 2)
Quarter: 2015Q4

REPORT INFORMATION
  Report Type: Spontaneous
  Country: US (occurrence: US)
  Receive Date: 20151108
  Receipt Date: 20151216
  Transmission Date: 20160304
  Serious: No
  Sender: FDA-Public Use
  Company Number: PHEH2015US022520

PATIENT
  Sex: Male

DRUGS (1)
  1. FARYDAK [Suspect]
     Active Substance: PANOBINOSTAT
     Indication: PLASMA CELL MYELOMA
     Dosage: 20 MG, ON DAYS 1,3, 5, 8, 10  AND 12 EVERY 3 WEEKS
     Route: 048
     Dates: start: 20151016

REACTIONS (2)
  - Dizziness [Not Recovered/Not Resolved]
  - Platelet count decreased [Unknown]
